FAERS Safety Report 8848275 (Version 2)
Quarter: 2012Q4

REPORT INFORMATION
  Report Type: 
  Country: US (occurrence: US)
  Receive Date: 20121018
  Receipt Date: 20121023
  Transmission Date: 20130627
  Serious: Yes (Death, Hospitalization)
  Sender: FDA-Public Use
  Company Number: US-JNJFOC-20121009703

PATIENT
  Age: 92 Year
  Sex: Female
  Weight: 70.8 kg

DRUGS (10)
  1. RIVAROXABAN [Suspect]
     Indication: CEREBROVASCULAR ACCIDENT PROPHYLAXIS
     Route: 048
  2. RIVAROXABAN [Suspect]
     Indication: ATRIAL FIBRILLATION
     Route: 048
  3. METOPROLOL XL [Concomitant]
  4. CARDIZEM [Concomitant]
  5. POTASSIUM [Concomitant]
  6. MAXIDE [Concomitant]
  7. MAXIDE [Concomitant]
  8. AMBIEN [Concomitant]
  9. IMODIUM [Concomitant]
  10. PEPTOBISMOL [Concomitant]

REACTIONS (3)
  - Subdural haematoma [Fatal]
  - Fall [Unknown]
  - Contusion [Unknown]
